FAERS Safety Report 7234456-6 (Version None)
Quarter: 2011Q1

REPORT INFORMATION
  Report Type: 
  Country: None (occurrence: None)
  Receive Date: 20110119
  Receipt Date: 20110118
  Transmission Date: 20110831
  Serious: Yes (Hospitalization)
  Sender: FDA-Public Use
  Company Number: FR-AMGEN-FRASP2011002768

PATIENT

DRUGS (5)
  1. CYTARABINE [Concomitant]
     Dosage: UNK
     Route: 042
     Dates: start: 20101201, end: 20101201
  2. METHYLPREDNISOLONE [Concomitant]
     Dosage: UNK
     Route: 042
     Dates: start: 20101201, end: 20101201
  3. NEUPOGEN [Suspect]
     Indication: CHEMOTHERAPY
     Dosage: UNK
     Route: 058
     Dates: start: 20101203, end: 20101203
  4. CISPLATIN [Concomitant]
     Dosage: UNK
     Route: 042
     Dates: start: 20101201, end: 20101201
  5. ETOPOSIDE [Concomitant]
     Dosage: UNK
     Route: 042
     Dates: start: 20101201, end: 20101201

REACTIONS (2)
  - MYOCARDIAL INFARCTION [None]
  - THROMBOSIS IN DEVICE [None]
